FAERS Safety Report 24642181 (Version 1)
Quarter: 2024Q4

REPORT INFORMATION
  Report Type: Report from Study
  Country: US (occurrence: US)
  Receive Date: 20241120
  Receipt Date: 20241120
  Transmission Date: 20250115
  Serious: Yes (Death, Other)
  Sender: ALEXION PHARMACEUTICALS
  Company Number: US-AstraZeneca-CH-00746232A

PATIENT
  Age: 84 Year

DRUGS (4)
  1. EPLONTERSEN SODIUM [Suspect]
     Active Substance: EPLONTERSEN SODIUM
  2. EPLONTERSEN SODIUM [Suspect]
     Active Substance: EPLONTERSEN SODIUM
  3. EPLONTERSEN SODIUM [Suspect]
     Active Substance: EPLONTERSEN SODIUM
  4. EPLONTERSEN SODIUM [Suspect]
     Active Substance: EPLONTERSEN SODIUM

REACTIONS (1)
  - Death [Fatal]
